FAERS Safety Report 25956245 (Version 1)
Quarter: 2025Q4

REPORT INFORMATION
  Report Type: Spontaneous
  Country: EG (occurrence: EG)
  Receive Date: 20251024
  Receipt Date: 20251024
  Transmission Date: 20260117
  Serious: Yes (Death, Other)
  Sender: Onesource Specialty Pharma
  Company Number: EG-STRIDES ARCOLAB LIMITED-2025OS001018

PATIENT

DRUGS (8)
  1. ETOPOSIDE [Suspect]
     Active Substance: ETOPOSIDE
     Indication: Atypical teratoid/rhabdoid tumour of CNS
     Dosage: INDUCTION CHEMOTHERAPY, ON DAY 1,2, AND 3 OF WEEK 4
     Route: 065
  2. METHOTREXATE [Suspect]
     Active Substance: METHOTREXATE
     Indication: Atypical teratoid/rhabdoid tumour of CNS
     Dosage: INDUCTION CHEMOTHERAPY , ON DAY 1 OF WEEKS 1,2, AND 4
     Route: 037
  3. HYDROCORTISONE [Suspect]
     Active Substance: HYDROCORTISONE
     Indication: Atypical teratoid/rhabdoid tumour of CNS
     Dosage: INDUCTION CHEMOTHERAPY, ON DAY 1 OF WEEKS 1,2, AND 4
     Route: 037
  4. CYTARABINE [Suspect]
     Active Substance: CYTARABINE
     Indication: Atypical teratoid/rhabdoid tumour of CNS
     Dosage: INDUCTION CHEMOTHERAPY, ON DAY 1 OF WEEKS 1,2, AND 4
     Route: 037
  5. VINCRISTINE [Suspect]
     Active Substance: VINCRISTINE
     Indication: Atypical teratoid/rhabdoid tumour of CNS
     Dosage: INDUCTION CHEMOTHERAPY, ON DAY 1 OF WEEKS 1 TO 6
     Route: 065
  6. CISPLATIN [Suspect]
     Active Substance: CISPLATIN
     Indication: Atypical teratoid/rhabdoid tumour of CNS
     Dosage: INDUCTION CHEMOTHERAPY, ON DAY 1 OF WEEKS 1 AND 4
     Route: 065
  7. DOXORUBICIN [Suspect]
     Active Substance: DOXORUBICIN
     Indication: Atypical teratoid/rhabdoid tumour of CNS
     Dosage: INDUCTION CHEMOTHERAPY, ON DAY 2 AND 3 OF WEEKS 1 AND 4
     Route: 065
  8. CYCLOPHOSPHAMIDE [Suspect]
     Active Substance: CYCLOPHOSPHAMIDE
     Indication: Atypical teratoid/rhabdoid tumour of CNS
     Dosage: INDUCTION CHEMOTHERAPY, ON DAY 2,3 AND 4 OF WEEK 1
     Route: 065

REACTIONS (3)
  - Diarrhoea [Fatal]
  - Shock [Fatal]
  - Off label use [Unknown]
